FAERS Safety Report 21078622 (Version 4)
Quarter: 2022Q4

REPORT INFORMATION
  Report Type: Spontaneous
  Country: CA (occurrence: CA)
  Receive Date: 20220713
  Receipt Date: 20221202
  Transmission Date: 20230113
  Serious: Yes (Hospitalization, Other)
  Sender: FDA-Public Use
  Company Number: CA-GILEAD-2022-0589170

PATIENT
  Age: 64 Year
  Sex: Female
  Weight: 93 kg

DRUGS (1)
  1. YESCARTA [Suspect]
     Active Substance: AXICABTAGENE CILOLEUCEL
     Indication: Non-Hodgkin^s lymphoma
     Dosage: 1 DOSAGE FORM
     Route: 041
     Dates: start: 20220524, end: 20220524

REACTIONS (4)
  - Meningitis bacterial [Recovering/Resolving]
  - Neutropenia [Unknown]
  - Headache [Unknown]
  - Listeriosis [Unknown]

NARRATIVE: CASE EVENT DATE: 20220524
